FAERS Safety Report 5287728-9 (Version None)
Quarter: 2007Q2

REPORT INFORMATION
  Report Type: 
  Country: None (occurrence: None)
  Receive Date: 20070405
  Receipt Date: 20070327
  Transmission Date: 20071010
  Serious: Yes (Hospitalization)
  Sender: FDA-Public Use
  Company Number: HQWYE062129MAR07

PATIENT
  Age: 44 Year
  Sex: Male

DRUGS (5)
  1. EFFEXOR XR [Suspect]
     Indication: ANXIETY
     Route: 048
     Dates: start: 20070216, end: 20070222
  2. EFFEXOR XR [Suspect]
     Route: 048
     Dates: start: 20070223, end: 20070301
  3. EFFEXOR XR [Suspect]
     Route: 048
     Dates: start: 20070302, end: 20070308
  4. EFFEXOR XR [Suspect]
     Route: 048
     Dates: start: 20070309, end: 20070315
  5. WELLBUTRIN [Concomitant]

REACTIONS (8)
  - ABNORMAL SENSATION IN EYE [None]
  - ASTHENIA [None]
  - CHEST PAIN [None]
  - DRUG WITHDRAWAL SYNDROME [None]
  - ERECTILE DYSFUNCTION [None]
  - LIBIDO DECREASED [None]
  - MOOD ALTERED [None]
  - VISION BLURRED [None]
